FAERS Safety Report 22607621 (Version 1)
Quarter: 2023Q2

REPORT INFORMATION
  Report Type: Spontaneous
  Country: US (occurrence: US)
  Receive Date: 20230616
  Receipt Date: 20230616
  Transmission Date: 20230722
  Serious: No
  Sender: FDA-Public Use
  Company Number: US-APOTEX-2022AP008750

PATIENT
  Sex: Male

DRUGS (1)
  1. CLOPIDOGREL [Suspect]
     Active Substance: CLOPIDOGREL BISULFATE
     Indication: Cardiac disorder
     Dosage: 0.5 DOSAGE FORM, QD
     Route: 065

REACTIONS (2)
  - Product odour abnormal [Unknown]
  - No adverse event [Unknown]

NARRATIVE: CASE EVENT DATE: 20220521
